FAERS Safety Report 9734246 (Version 2)
Quarter: 2014Q1

REPORT INFORMATION
  Report Type: Spontaneous
  Country: US (occurrence: US)
  Receive Date: 20131205
  Receipt Date: 20140131
  Transmission Date: 20141002
  Serious: No
  Sender: FDA-Public Use
  Company Number: US-009507513-1312USA002676

PATIENT
  Age: 72 Year
  Sex: Male
  Weight: 89.34 kg

DRUGS (2)
  1. CLARITIN [Suspect]
     Indication: LACRIMATION INCREASED
     Dosage: UNK, QD
     Route: 048
     Dates: start: 20131110, end: 20131130
  2. CLARITIN [Suspect]
     Indication: RHINORRHOEA

REACTIONS (1)
  - Drug ineffective [Unknown]
